FAERS Safety Report 15064154 (Version 1)
Quarter: 2018Q2

REPORT INFORMATION
  Report Type: Report from Study
  Country: IL (occurrence: IL)
  Receive Date: 20180625
  Receipt Date: 20180625
  Transmission Date: 20180711
  Serious: Yes (Hospitalization)
  Sender: FDA-Public Use
  Company Number: IL-SHIRE-IL201822330

PATIENT

DRUGS (1)
  1. VPRIV [Suspect]
     Active Substance: VELAGLUCERASE ALFA
     Indication: GAUCHER^S DISEASE
     Dosage: 2/3 VIALS ALTERNATING, 1X/2WKS (A TOTAL OF 5 VIALS PER MONTH)
     Route: 065
     Dates: start: 20180108

REACTIONS (2)
  - Speech disorder [Unknown]
  - Confusional state [Unknown]
